FAERS Safety Report 7056363-4 (Version None)
Quarter: 2010Q4

REPORT INFORMATION
  Report Type: 
  Country: None (occurrence: None)
  Receive Date: 20101021
  Receipt Date: 20101015
  Transmission Date: 20110411
  Serious: Yes (Other)
  Sender: FDA-Public Use
  Company Number: US-WYE-H18203910

PATIENT
  Sex: Female
  Weight: 68.1 kg

DRUGS (5)
  1. EFFEXOR XR [Suspect]
     Indication: DEPRESSION
     Route: 048
     Dates: start: 19970101, end: 20100201
  2. EFFEXOR XR [Suspect]
     Indication: ANXIETY
     Route: 048
     Dates: start: 20100201, end: 20100201
  3. EFFEXOR XR [Suspect]
     Route: 048
     Dates: start: 20100201, end: 20100201
  4. EFFEXOR XR [Suspect]
     Route: 048
     Dates: start: 20100201, end: 20100201
  5. EFFEXOR XR [Suspect]
     Route: 048
     Dates: start: 20100201

REACTIONS (7)
  - DRUG DEPENDENCE [None]
  - DRUG WITHDRAWAL SYNDROME [None]
  - ECZEMA [None]
  - HEADACHE [None]
  - NAUSEA [None]
  - PALPITATIONS [None]
  - TREMOR [None]
